FAERS Safety Report 7217990-4 (Version None)
Quarter: 2011Q1

REPORT INFORMATION
  Report Type: 
  Country: None (occurrence: None)
  Receive Date: 20110110
  Receipt Date: 20110105
  Transmission Date: 20110831
  Serious: Yes (Death)
  Sender: FDA-Public Use
  Company Number: B0689890A

PATIENT
  Age: 4 Year
  Sex: Male

DRUGS (1)
  1. ZANAMIVIR [Suspect]
     Indication: H1N1 INFLUENZA
     Route: 042

REACTIONS (2)
  - ACUTE RESPIRATORY DISTRESS SYNDROME [None]
  - PNEUMONIA STAPHYLOCOCCAL [None]
